FAERS Safety Report 22217043 (Version 4)
Quarter: 2023Q2

REPORT INFORMATION
  Report Type: Spontaneous
  Country: US (occurrence: US)
  Receive Date: 20230417
  Receipt Date: 20230609
  Transmission Date: 20230722
  Serious: Yes (Other)
  Sender: FDA-Public Use
  Company Number: US-Vifor (International) Inc.-VIT-2023-02633

PATIENT
  Age: 38 Year
  Sex: Female
  Weight: 67 kg

DRUGS (6)
  1. MIRCERA [Suspect]
     Active Substance: METHOXY POLYETHYLENE GLYCOL-EPOETIN BETA
     Indication: Anaemia
     Dosage: BI-WEEKLY
     Route: 042
     Dates: start: 20230408, end: 20230408
  2. MIRCERA [Suspect]
     Active Substance: METHOXY POLYETHYLENE GLYCOL-EPOETIN BETA
     Dosage: BI-WEEKLY
     Route: 042
     Dates: start: 20230408, end: 20230408
  3. MIRCERA [Suspect]
     Active Substance: METHOXY POLYETHYLENE GLYCOL-EPOETIN BETA
     Dosage: BI-WEEKLY
     Route: 042
     Dates: start: 20230408, end: 20230408
  4. VENOFER [Suspect]
     Active Substance: IRON SUCROSE
     Indication: Product used for unknown indication
     Route: 042
  5. CINACALCET [Concomitant]
     Active Substance: CINACALCET
  6. CALCITRIOL [Concomitant]
     Active Substance: CALCITRIOL

REACTIONS (4)
  - Cardiac arrest [Recovered/Resolved]
  - Unresponsive to stimuli [Recovered/Resolved]
  - Chest pain [Recovered/Resolved]
  - Off label use [Unknown]

NARRATIVE: CASE EVENT DATE: 20230408
